FAERS Safety Report 24463972 (Version 3)
Quarter: 2024Q4

REPORT INFORMATION
  Report Type: Spontaneous
  Country: JP (occurrence: JP)
  Receive Date: 20241018
  Receipt Date: 20241113
  Transmission Date: 20250114
  Serious: Yes (Hospitalization, Other)
  Sender: OTSUKA
  Company Number: JP-OTSUKA-2024_028386

PATIENT
  Age: 3 Decade
  Sex: Female

DRUGS (4)
  1. REXULTI [Suspect]
     Active Substance: BREXPIPRAZOLE
     Indication: Schizophrenia
     Dosage: 2 MG/DAY
     Route: 048
     Dates: end: 202408
  2. REXULTI [Suspect]
     Active Substance: BREXPIPRAZOLE
     Indication: Schizoaffective disorder
  3. QUETIAPINE FUMARATE [Concomitant]
     Active Substance: QUETIAPINE FUMARATE
     Indication: Product used for unknown indication
     Dosage: 50 MG/DAY
     Route: 048
  4. ASENAPINE MALEATE [Concomitant]
     Active Substance: ASENAPINE MALEATE
     Indication: Product used for unknown indication
     Dosage: 15 MG/DAY
     Route: 048

REACTIONS (4)
  - Agitation [Unknown]
  - Hallucination [Recovered/Resolved]
  - Delusion [Recovered/Resolved]
  - Treatment noncompliance [Unknown]

NARRATIVE: CASE EVENT DATE: 20240101
